FAERS Safety Report 5085411-6 (Version None)
Quarter: 2006Q3

REPORT INFORMATION
  Report Type: 
  Country: None (occurrence: None)
  Receive Date: 20060816
  Receipt Date: 20060811
  Transmission Date: 20061208
  Serious: Yes (Death)
  Sender: FDA-Public Use
  Company Number: 2006P1000339

PATIENT
  Age: 71 Year
  Sex: Male
  Weight: 75 kg

DRUGS (15)
  1. RETEPLASE (RETEPLASE) [Suspect]
     Indication: ACUTE MYOCARDIAL INFARCTION
     Dosage: IV
     Route: 042
     Dates: start: 20060309, end: 20060309
  2. REOPRO [Suspect]
     Indication: ACUTE MYOCARDIAL INFARCTION
     Dosage: IV
     Route: 042
     Dates: start: 20060309, end: 20060309
  3. ASPIRIN [Concomitant]
  4. FOLIC ACID [Concomitant]
  5. FERROUS SULFATE TAB [Concomitant]
  6. RANITIDINE [Concomitant]
  7. SULFASALAZINE [Concomitant]
  8. ROSUVASTATIN [Concomitant]
  9. LACTULOSE [Concomitant]
  10. CLOPIDOGREL [Concomitant]
  11. AMLODIPINE [Concomitant]
  12. AUGMENTIN [Concomitant]
  13. DILTIAZEM HCL [Concomitant]
  14. METOCLOPRAMIDE [Concomitant]
  15. MONOCEDOCARD [Concomitant]

REACTIONS (3)
  - CARDIAC FAILURE CHRONIC [None]
  - PNEUMONIA [None]
  - RENAL IMPAIRMENT [None]
